FAERS Safety Report 6008033-9 (Version None)
Quarter: 2008Q4

REPORT INFORMATION
  Report Type: 
  Country: None (occurrence: None)
  Receive Date: 20081217
  Receipt Date: 20081208
  Transmission Date: 20090506
  Serious: No
  Sender: FDA-Public Use
  Company Number: FI-ASTRAZENECA-2008SE05622

PATIENT
  Age: 10325 Day
  Sex: Male

DRUGS (2)
  1. SEROQUEL XR [Suspect]
     Indication: SCHIZOPHRENIA
     Route: 048
     Dates: start: 20080826, end: 20081015
  2. OPAMOX [Concomitant]
     Indication: ANXIETY
     Route: 048
     Dates: start: 20080905

REACTIONS (1)
  - NEUTROPENIA [None]
